FAERS Safety Report 10658384 (Version 1)
Quarter: 2014Q4

REPORT INFORMATION
  Report Type: Spontaneous
  Country: US (occurrence: None)
  Receive Date: 20141205
  Receipt Date: 20141205
  Transmission Date: 20150529
  Serious: Yes (Hospitalization, Other)
  Sender: FDA-Public Use
  Company Number: USA-2014094465

PATIENT
  Age: 62 Year
  Sex: Male

DRUGS (1)
  1. POMALIDOMIDE (POMALIDOMIDE) (1 MILLIGRAM, CAPSULES) [Suspect]
     Active Substance: POMALIDOMIDE
     Indication: PLASMA CELL MYELOMA
     Dosage: 1 MGM  1 IN 1 D, PO
     Route: 048
     Dates: start: 201402

REACTIONS (1)
  - Cardiac failure congestive [None]

NARRATIVE: CASE EVENT DATE: 20140914
